FAERS Safety Report 8532523-8 (Version None)
Quarter: 2012Q3

REPORT INFORMATION
  Report Type: 
  Country: None (occurrence: None)
  Receive Date: 20120724
  Receipt Date: 20120717
  Transmission Date: 20120928
  Serious: No
  Sender: FDA-Public Use
  Company Number: US-PFIZER INC-2012157404

PATIENT
  Sex: Female

DRUGS (13)
  1. OXYCONTIN [Suspect]
     Dosage: UNK
  2. TITANIUM DIOXIDE [Suspect]
     Dosage: UNK
  3. SECRETIN INJ [Suspect]
     Dosage: UNK
  4. IODINE [Suspect]
     Dosage: UNK
  5. GABAPENTIN [Suspect]
     Dosage: UNK
  6. MORPHINE SULFATE [Suspect]
     Dosage: UNK
  7. HYDROCODONE BITARTRATE + ACETAMINOPHEN [Suspect]
     Dosage: UNK
  8. POVIDONE-IODINE (FORMULA 47) [Suspect]
     Dosage: UNK
  9. SEROQUEL [Suspect]
     Dosage: UNK
  10. PROZAC [Suspect]
     Dosage: UNK
  11. CIPROFLOXACIN HCL [Suspect]
     Dosage: UNK
  12. ZYPREXA [Suspect]
     Dosage: UNK
  13. CELEXA [Suspect]
     Dosage: UNK

REACTIONS (2)
  - DRUG HYPERSENSITIVITY [None]
  - CHEST PAIN [None]
